FAERS Safety Report 11773593 (Version 1)
Quarter: 2015Q4

REPORT INFORMATION
  Report Type: Other
  Country: None (occurrence: US)
  Receive Date: 20151124
  Receipt Date: 20151124
  Transmission Date: 20160304
  Serious: Yes (Other)
  Sender: FDA-Public Use
  Company Number: US-NEXGEN PHARMA, INC.-1044566

PATIENT
  Sex: Male

DRUGS (1)
  1. BIOTIN [Suspect]
     Active Substance: BIOTIN

REACTIONS (3)
  - Drug dose omission [None]
  - Dermatitis allergic [Unknown]
  - Renal failure [Unknown]
